FAERS Safety Report 5425642-6 (Version None)
Quarter: 2007Q3

REPORT INFORMATION
  Report Type: 
  Country: None (occurrence: None)
  Receive Date: 20070824
  Receipt Date: 20070813
  Transmission Date: 20080115
  Serious: Yes (Other)
  Sender: FDA-Public Use
  Company Number: US-PFIZER INC-2007068114

PATIENT
  Sex: Male

DRUGS (2)
  1. CHANTIX [Suspect]
  2. ATRIPLA [Interacting]

REACTIONS (2)
  - DRUG INTERACTION [None]
  - HALLUCINATION [None]
